FAERS Safety Report 4300557-5 (Version None)
Quarter: 2004Q1

REPORT INFORMATION
  Report Type: 
  Country: None (occurrence: None)
  Receive Date: 20040217
  Receipt Date: 20040210
  Transmission Date: 20041129
  Serious: Yes (Hospitalization, Other)
  Sender: FDA-Public Use
  Company Number: 2003120008

PATIENT
  Age: 45 Year
  Sex: Male
  Weight: 79 kg

DRUGS (2)
  1. VFEND [Suspect]
     Indication: BRONCHOPULMONARY ASPERGILLOSIS
     Dosage: 200 MG BID, ORAL
     Route: 048
     Dates: start: 20030101
  2. ANTINEOPLASTIC AGENTS [Concomitant]

REACTIONS (2)
  - ACUTE MYELOID LEUKAEMIA RECURRENT [None]
  - PHOTOSENSITIVITY REACTION [None]
